FAERS Safety Report 5306980-4 (Version None)
Quarter: 2007Q2

REPORT INFORMATION
  Report Type: 
  Country: None (occurrence: None)
  Receive Date: 20070419
  Receipt Date: 20070405
  Transmission Date: 20071010
  Serious: Yes (Death, Hospitalization)
  Sender: FDA-Public Use
  Company Number: 2007BI007504

PATIENT
  Age: 35 Year
  Sex: Female
  Weight: 71.6683 kg

DRUGS (11)
  1. NATALIZUMAB [Suspect]
     Indication: MULTIPLE SCLEROSIS
     Dosage: 300 UG;QM;IV
     Route: 042
     Dates: start: 20061001, end: 20070209
  2. TETRAHYDROCANNABINOL [Concomitant]
  3. TEGRETOL-XR [Concomitant]
  4. LEVOXYL [Concomitant]
  5. DIAZEPAM [Concomitant]
  6. OXYBUTYNIN CHLORIDE [Concomitant]
  7. ADVIL [Concomitant]
  8. MVT [Concomitant]
  9. PAXIL [Concomitant]
  10. BACLOFEN [Concomitant]
  11. ZANAFLEX [Concomitant]

REACTIONS (7)
  - DEPRESSION [None]
  - DISEASE PROGRESSION [None]
  - MENTAL STATUS CHANGES [None]
  - MULTIPLE SCLEROSIS [None]
  - NASAL CONGESTION [None]
  - NO THERAPEUTIC RESPONSE [None]
  - SINUSITIS [None]
